FAERS Safety Report 22392549 (Version 1)
Quarter: 2023Q2

REPORT INFORMATION
  Report Type: Spontaneous
  Country: US (occurrence: None)
  Receive Date: 20230531
  Receipt Date: 20230531
  Transmission Date: 20230721
  Serious: Yes (Other)
  Sender: FDA-Public Use
  Company Number: None

PATIENT
  Age: 46 Year
  Sex: Female

DRUGS (11)
  1. AIMOVIG [Suspect]
     Active Substance: ERENUMAB-AOOE
     Indication: Migraine
     Dosage: OTHER FREQUENCY : Q 30 DAYS;?
     Route: 058
     Dates: start: 20230517, end: 20230517
  2. CYANOCOBALAMIN [Concomitant]
     Active Substance: CYANOCOBALAMIN
  3. CYCLOBENZAPRINE [Concomitant]
     Active Substance: CYCLOBENZAPRINE
  4. PREDNISONE [Concomitant]
     Active Substance: PREDNISONE
  5. PRISTIQ EXTENDED-RELEASE [Concomitant]
     Active Substance: DESVENLAFAXINE SUCCINATE
  6. ROSUVASTATIN [Concomitant]
     Active Substance: ROSUVASTATIN
  7. TOPIRAMATE [Concomitant]
     Active Substance: TOPIRAMATE
  8. ADVAIR DISKUS (YELLOW) [Concomitant]
  9. ALBUTEROL HFA INH [Concomitant]
  10. ASPIRIN CHEWABLE TABLETS [Concomitant]
  11. METFORMIN [Concomitant]

REACTIONS (2)
  - Rash [None]
  - Blister [None]

NARRATIVE: CASE EVENT DATE: 20230517
